FAERS Safety Report 13920979 (Version 1)
Quarter: 2017Q3

REPORT INFORMATION
  Report Type: Spontaneous
  Country: BR (occurrence: BR)
  Receive Date: 20170830
  Receipt Date: 20170830
  Transmission Date: 20171127
  Serious: Yes (Other)
  Sender: FDA-Public Use
  Company Number: PHHY2017BR126394

PATIENT
  Age: 20 Year
  Sex: Female

DRUGS (1)
  1. DESOGESTREL [Suspect]
     Active Substance: DESOGESTREL
     Indication: CONTRACEPTION
     Dosage: 1 DF, QD
     Route: 048
     Dates: start: 20170818

REACTIONS (5)
  - Vaginal haemorrhage [Unknown]
  - Drug ineffective for unapproved indication [Unknown]
  - Abdominal pain [Unknown]
  - Euphoric mood [Unknown]
  - Dysmenorrhoea [Unknown]
